FAERS Safety Report 7641047-1 (Version None)
Quarter: 2011Q3

REPORT INFORMATION
  Report Type: 
  Country: None (occurrence: None)
  Receive Date: 20110722
  Receipt Date: 20110706
  Transmission Date: 20111222
  Serious: Yes (Hospitalization, Other)
  Sender: FDA-Public Use
  Company Number: 2011MA008446

PATIENT
  Age: 41 Year
  Sex: Male
  Weight: 141 kg

DRUGS (5)
  1. CITALOPRAM HYDROBROMIDE [Concomitant]
  2. CLORAZEPATE DIPOTASSIUM [Concomitant]
  3. CARBAMAZEPINE EXTENDED-RELEASED [Concomitant]
  4. LEVETIRACETAM [Suspect]
     Indication: OVERDOSE
     Dosage: 63 GR; 1X; PO
     Route: 048
  5. AMITRIPTYLINE HCL [Concomitant]

REACTIONS (10)
  - VISION BLURRED [None]
  - BLOOD PRESSURE DIASTOLIC DECREASED [None]
  - LEUKOPENIA [None]
  - THROMBOCYTOPENIA [None]
  - ATAXIA [None]
  - DEPRESSION [None]
  - INTENTIONAL OVERDOSE [None]
  - ECONOMIC PROBLEM [None]
  - FAMILY STRESS [None]
  - GAIT DISTURBANCE [None]
